FAERS Safety Report 5061483-X (Version None)
Quarter: 2006Q3

REPORT INFORMATION
  Report Type: 
  Country: None (occurrence: None)
  Receive Date: 20060703
  Receipt Date: 20060419
  Transmission Date: 20061208
  Serious: No
  Sender: FDA-Public Use
  Company Number: 2006PV012310

PATIENT
  Age: 73 Year
  Sex: Male
  Weight: 93.441 kg

DRUGS (2)
  1. SYMLIN [Suspect]
     Indication: DIABETES MELLITUS NON-INSULIN-DEPENDENT
     Dosage: 30 MCG;BID;SC
     Route: 058
     Dates: start: 20060417
  2. HUMULIN 70/30 [Concomitant]

REACTIONS (4)
  - ABDOMINAL DISTENSION [None]
  - CONSTIPATION [None]
  - DECREASED APPETITE [None]
  - NAUSEA [None]
